FAERS Safety Report 6496650-1 (Version None)
Quarter: 2009Q4

REPORT INFORMATION
  Report Type: 
  Country: None (occurrence: None)
  Receive Date: 20091125
  Receipt Date: 20090722
  Transmission Date: 20100525
  Serious: Yes (Other)
  Sender: FDA-Public Use
  Company Number: 2009BH011275

PATIENT
  Age: 65 Year
  Sex: Male

DRUGS (9)
  1. DIANEAL [Suspect]
     Indication: PERITONEAL DIALYSIS
     Dosage: 10 L; IP
     Route: 033
     Dates: start: 20080211
  2. ISOSORBIDE [Concomitant]
  3. TOPROL-XL [Concomitant]
  4. ASPIRIN [Concomitant]
  5. RENAGEL [Concomitant]
  6. CALCITRIOL [Concomitant]
  7. RENA-VITE [Concomitant]
  8. IRON [Concomitant]
  9. GLYBURIDE [Concomitant]

REACTIONS (3)
  - MEDICAL DEVICE COMPLICATION [None]
  - PERITONEAL DIALYSIS COMPLICATION [None]
  - PERITONITIS [None]
